FAERS Safety Report 8204824-4 (Version None)
Quarter: 2012Q1

REPORT INFORMATION
  Report Type: 
  Country: None (occurrence: None)
  Receive Date: 20120313
  Receipt Date: 20120302
  Transmission Date: 20120608
  Serious: Yes (Other)
  Sender: FDA-Public Use
  Company Number: US-JNJFOC-20120105400

PATIENT
  Sex: Male
  Weight: 112.04 kg

DRUGS (11)
  1. METHYLPREDNISOLONE [Concomitant]
     Indication: PREMEDICATION
  2. LIPITOR [Concomitant]
  3. ATENOLOL [Concomitant]
     Indication: BLOOD PRESSURE
     Dosage: 50
     Route: 048
     Dates: start: 20110101
  4. CHLORTHALIDONE [Concomitant]
     Indication: BLOOD PRESSURE
     Dosage: DOSE: 25
     Route: 048
     Dates: start: 20110101
  5. TYLENOL [Concomitant]
     Indication: PREMEDICATION
  6. ASPIRIN [Concomitant]
  7. REMICADE [Suspect]
     Route: 042
     Dates: start: 20111101
  8. REMICADE [Suspect]
     Route: 042
     Dates: start: 20120214
  9. ATENOLOL [Concomitant]
  10. BENADRYL [Concomitant]
     Indication: PREMEDICATION
  11. REMICADE [Suspect]
     Indication: CROHN'S DISEASE
     Route: 042
     Dates: start: 20111220

REACTIONS (4)
  - HYPERSENSITIVITY [None]
  - INFUSION RELATED REACTION [None]
  - HERPES ZOSTER [None]
  - BLOOD CHOLESTEROL INCREASED [None]
